FAERS Safety Report 5870306-8 (Version None)
Quarter: 2008Q3

REPORT INFORMATION
  Report Type: 
  Country: None (occurrence: None)
  Receive Date: 20080904
  Receipt Date: 20070830
  Transmission Date: 20090109
  Serious: No
  Sender: FDA-Public Use
  Company Number: US-BRISTOL-MYERS SQUIBB COMPANY-13894001

PATIENT
  Sex: Male
  Weight: 120 kg

DRUGS (5)
  1. DEFINITY [Suspect]
     Indication: ECHOCARDIOGRAM
     Dosage: 3ML IN NORMAL SALINE IVPUSH
     Route: 042
     Dates: start: 20070830
  2. COREG [Concomitant]
  3. AVAPRO [Concomitant]
  4. LIPITOR [Concomitant]
  5. ASPIRIN [Concomitant]

REACTIONS (1)
  - BACK PAIN [None]
